FAERS Safety Report 16383275 (Version 1)
Quarter: 2019Q2

REPORT INFORMATION
  Report Type: Spontaneous
  Country: JP (occurrence: JP)
  Receive Date: 20190603
  Receipt Date: 20190603
  Transmission Date: 20190711
  Serious: Yes (Other)
  Sender: FDA-Public Use
  Company Number: JP-BAYER-2019-105649

PATIENT
  Age: 53 Year
  Sex: Female

DRUGS (4)
  1. DEXTROMETHORPHAN HYDROBROMIDE. [Concomitant]
     Active Substance: DEXTROMETHORPHAN HYDROBROMIDE
     Indication: INFLUENZA
     Dosage: 15 MG, TID
     Route: 048
     Dates: start: 20190306, end: 20190316
  2. XOFLUZA [Suspect]
     Active Substance: BALOXAVIR MARBOXIL
     Indication: INFLUENZA
     Dosage: 40 MG, ONCE
     Route: 048
     Dates: start: 20190306, end: 20190306
  3. CLARITIN [Suspect]
     Active Substance: LORATADINE
     Indication: INFLUENZA
     Dosage: 10 MG, QD
     Route: 048
     Dates: start: 20190306, end: 20190311
  4. MUCOSOLVAN L [Concomitant]
     Active Substance: AMBROXOL HYDROCHLORIDE
     Indication: INFLUENZA
     Dosage: 45 MG, QD
     Route: 048
     Dates: start: 20190306, end: 20190311

REACTIONS (3)
  - Off label use [None]
  - Product use in unapproved indication [None]
  - Postmenopausal haemorrhage [Recovered/Resolved]

NARRATIVE: CASE EVENT DATE: 20190306
